FAERS Safety Report 13111933 (Version 2)
Quarter: 2017Q1

REPORT INFORMATION
  Report Type: Report from Study
  Country: NL (occurrence: NL)
  Receive Date: 20170113
  Receipt Date: 20170331
  Transmission Date: 20170428
  Serious: Yes (Death, Hospitalization, Other)
  Sender: FDA-Public Use
  Company Number: NL-AMGEN-NLDSL2017000839

PATIENT
  Age: 52 Year
  Sex: Female

DRUGS (1)
  1. ARANESP [Suspect]
     Active Substance: DARBEPOETIN ALFA
     Indication: NEPHROGENIC ANAEMIA
     Dosage: 80 MUG ,(200 MCG/ML, 0.4 ML), Q2WK
     Route: 058

REACTIONS (3)
  - Death [Fatal]
  - Hospitalisation [Unknown]
  - Hospice care [Unknown]

NARRATIVE: CASE EVENT DATE: 20161213
